FAERS Safety Report 22020871 (Version 1)
Quarter: 2023Q1

REPORT INFORMATION
  Report Type: Spontaneous
  Country: FR (occurrence: FR)
  Receive Date: 20230222
  Receipt Date: 20230222
  Transmission Date: 20230417
  Serious: Yes (Other)
  Sender: FDA-Public Use
  Company Number: None

PATIENT
  Age: 25 Year
  Sex: Male

DRUGS (4)
  1. CYMBALTA [Suspect]
     Active Substance: DULOXETINE HYDROCHLORIDE
     Indication: Product used for unknown indication
     Dosage: 60 MG, UNKNOWN
     Route: 048
     Dates: start: 2013
  2. BUPRENORPHINE HYDROCHLORIDE [Suspect]
     Active Substance: BUPRENORPHINE HYDROCHLORIDE
     Indication: Product used for unknown indication
     Dosage: 0.2 MG, BID (EVERY 12 HOURS)
     Route: 048
     Dates: start: 2013
  3. LYRICA [Suspect]
     Active Substance: PREGABALIN
     Indication: Product used for unknown indication
     Dosage: 400 MG, UNKNOWN
     Route: 048
     Dates: start: 2013
  4. XANAX [Suspect]
     Active Substance: ALPRAZOLAM
     Indication: Product used for unknown indication
     Dosage: 0.5 MG, UNKNOWN
     Route: 048
     Dates: start: 2013

REACTIONS (1)
  - Oesophageal achalasia [Unknown]

NARRATIVE: CASE EVENT DATE: 20230101
